FAERS Safety Report 10505698 (Version 2)
Quarter: 2015Q1

REPORT INFORMATION
  Report Type: Spontaneous
  Country: US (occurrence: US)
  Receive Date: 20141008
  Receipt Date: 20150316
  Transmission Date: 20150720
  Serious: Yes (Death)
  Sender: FDA-Public Use
  Company Number: US-PFIZER INC-2014274436

PATIENT
  Age: 69 Year
  Sex: Male

DRUGS (6)
  1. ISOSORBIDE MONONITRATE EXTENDED RELEASE [Concomitant]
     Active Substance: ISOSORBIDE MONONITRATE
     Dosage: UNK
  2. GUANFACINE HYDROCHLORIDE. [Concomitant]
     Active Substance: GUANFACINE HYDROCHLORIDE
     Dosage: UNK
  3. SUTENT [Suspect]
     Active Substance: SUNITINIB MALATE
     Dosage: UNK, 1X/DAY
     Dates: start: 20140411, end: 20140510
  4. ATORVASTATIN CALCIUM. [Concomitant]
     Active Substance: ATORVASTATIN CALCIUM
     Dosage: UNK
  5. SUTENT [Suspect]
     Active Substance: SUNITINIB MALATE
     Indication: RENAL CELL CARCINOMA
     Dosage: UNK
     Dates: start: 20140409
  6. SUTENT [Suspect]
     Active Substance: SUNITINIB MALATE
     Dosage: UNK, 1X/DAY
     Dates: start: 20140523, end: 20140621

REACTIONS (1)
  - Death [Fatal]

NARRATIVE: CASE EVENT DATE: 20140902
